FAERS Safety Report 15302329 (Version 1)
Quarter: 2018Q3

REPORT INFORMATION
  Report Type: Spontaneous
  Country: MY (occurrence: MY)
  Receive Date: 20180821
  Receipt Date: 20180821
  Transmission Date: 20181010
  Serious: Yes (Other)
  Sender: FDA-Public Use
  Company Number: MY-DSJP-DSU-2018-136925

PATIENT

DRUGS (1)
  1. AZOREN [Suspect]
     Active Substance: AMLODIPINE BESYLATE\OLMESARTAN MEDOXOMIL
     Indication: PRODUCT USED FOR UNKNOWN INDICATION
     Dosage: 1 DF (20/5 MG), UNK
     Route: 065

REACTIONS (3)
  - Orthostatic hypotension [Unknown]
  - Dizziness [Unknown]
  - Loss of consciousness [Unknown]
